FAERS Safety Report 17576267 (Version 1)
Quarter: 2020Q1

REPORT INFORMATION
  Report Type: Spontaneous
  Country: US (occurrence: US)
  Receive Date: 20200324
  Receipt Date: 20200324
  Transmission Date: 20200409
  Serious: Yes (Other)
  Sender: FDA-Public Use
  Company Number: US-SA-2020SA072698

PATIENT
  Age: 30 Year
  Sex: Female

DRUGS (1)
  1. LEMTRADA [Suspect]
     Active Substance: ALEMTUZUMAB
     Dosage: UNK
     Route: 041

REACTIONS (7)
  - Transaminases increased [Recovering/Resolving]
  - Aspartate aminotransferase increased [Recovering/Resolving]
  - Hepatic fibrosis [Unknown]
  - Alanine aminotransferase increased [Recovering/Resolving]
  - Lymphocyte count abnormal [Unknown]
  - Abdominal discomfort [Unknown]
  - Steatohepatitis [Unknown]
